FAERS Safety Report 16675838 (Version 1)
Quarter: 2019Q3

REPORT INFORMATION
  Report Type: Spontaneous
  Country: ES (occurrence: ES)
  Receive Date: 20190807
  Receipt Date: 20190807
  Transmission Date: 20191004
  Serious: Yes (Congenital Anomaly)
  Sender: FDA-Public Use
  Company Number: ES-SUN PHARMACEUTICAL INDUSTRIES LTD-2019RR-216518

PATIENT
  Age: 25 Day
  Sex: Female

DRUGS (6)
  1. INFANRIX SUSPENSION INYECTABLE EN JERINGA PRECARGADA , 1 JERINGA PR... [Concomitant]
     Indication: IMMUNISATION
     Dosage: IN TOTAL
     Route: 064
     Dates: start: 20190425, end: 20190425
  2. FERPLEX 40 MG SOLUCION ORAL, 20 VIALES BEBIBLES DE 15 ML [Concomitant]
     Indication: PREGNANCY
     Dosage: 40 MILLIGRAM UNK
     Route: 064
     Dates: start: 20180123
  3. YODOCEFOL 200/400/2 MICROGRAMOS COMPRIMIDOS, 28 COMPRIMIDOS [Concomitant]
     Indication: PREGNANCY
     Dosage: 1 DOSAGE FORM UNK
     Route: 064
     Dates: start: 20181025
  4. SERTRALINE [Suspect]
     Active Substance: SERTRALINE HYDROCHLORIDE
     Indication: SOCIAL ANXIETY DISORDER
     Dosage: UNK
     Route: 064
     Dates: start: 20180809, end: 20190616
  5. DICLOFENACO (745A) [Concomitant]
     Active Substance: DICLOFENAC
     Indication: MIGRAINE
     Dosage: IN TOTAL
     Route: 064
     Dates: start: 20190302, end: 20190302
  6. VAXIGRIP SUSPENSION INYECTABLE EN JERINGA PRECARGADA , 1 JERINGA PR... [Concomitant]
     Indication: IMMUNISATION
     Dosage: IN TOTAL
     Route: 064
     Dates: start: 20181029, end: 20181029

REACTIONS (2)
  - Foetal exposure during pregnancy [Not Recovered/Not Resolved]
  - Femur-fibula-ulna complex [Not Recovered/Not Resolved]

NARRATIVE: CASE EVENT DATE: 201808
